FAERS Safety Report 10281192 (Version 3)
Quarter: 2014Q3

REPORT INFORMATION
  Report Type: Spontaneous
  Country: DE (occurrence: DE)
  Receive Date: 20140707
  Receipt Date: 20140819
  Transmission Date: 20150326
  Serious: Yes (Other)
  Sender: FDA-Public Use
  Company Number: DE-BRISTOL-MYERS SQUIBB COMPANY-21170063

PATIENT
  Age: 61 Year
  Sex: Female
  Weight: 77.5 kg

DRUGS (5)
  1. LOCOL [Concomitant]
     Active Substance: FLUVASTATIN SODIUM
  2. LANTUS [Concomitant]
     Active Substance: INSULIN GLARGINE
  3. BENALAPRIL [Concomitant]
  4. JANUMET [Concomitant]
     Active Substance: METFORMIN HYDROCHLORIDE\SITAGLIPTIN PHOSPHATE
  5. FORXIGA [Suspect]
     Active Substance: DAPAGLIFLOZIN
     Route: 048
     Dates: start: 20140620, end: 20140624

REACTIONS (2)
  - Rash [Recovering/Resolving]
  - Pruritus [Recovering/Resolving]

NARRATIVE: CASE EVENT DATE: 20140625
